FAERS Safety Report 11430988 (Version 1)
Quarter: 2015Q3

REPORT INFORMATION
  Report Type: Spontaneous
  Country: US (occurrence: US)
  Receive Date: 20150828
  Receipt Date: 20150828
  Transmission Date: 20151125
  Serious: No
  Sender: FDA-Public Use
  Company Number: PHEH2014US021503

PATIENT
  Sex: Female

DRUGS (2)
  1. VIVELLE DOT [Suspect]
     Active Substance: ESTRADIOL
     Indication: OFF LABEL USE
  2. VIVELLE DOT [Suspect]
     Active Substance: ESTRADIOL
     Indication: OSTEOPOROSIS
     Dosage: 0.025 UNK, UNK
     Route: 062

REACTIONS (1)
  - Drug prescribing error [Unknown]
